FAERS Safety Report 13419545 (Version 3)
Quarter: 2017Q2

REPORT INFORMATION
  Report Type: Spontaneous
  Country: US (occurrence: US)
  Receive Date: 20170407
  Receipt Date: 20170508
  Transmission Date: 20170830
  Serious: Yes (Other)
  Sender: FDA-Public Use
  Company Number: US-009507513-1703USA013737

PATIENT
  Age: 74 Year
  Sex: Female

DRUGS (3)
  1. VYTORIN [Suspect]
     Active Substance: EZETIMIBE\SIMVASTATIN
     Indication: BLOOD CHOLESTEROL INCREASED
     Dosage: 10/20 MG DAILY
     Route: 048
  2. NORVASC [Concomitant]
     Active Substance: AMLODIPINE BESYLATE
     Dosage: UNK
  3. SULINDAC. [Concomitant]
     Active Substance: SULINDAC
     Dosage: UNK
     Route: 048

REACTIONS (2)
  - Thrombosis [Unknown]
  - Diabetes mellitus [Unknown]
